FAERS Safety Report 7483954-9 (Version None)
Quarter: 2011Q2

REPORT INFORMATION
  Report Type: 
  Country: None (occurrence: None)
  Receive Date: 20110517
  Receipt Date: 20110512
  Transmission Date: 20111010
  Serious: Yes (Hospitalization)
  Sender: FDA-Public Use
  Company Number: ES-PFIZER INC-2011102963

PATIENT
  Age: 45 Year
  Sex: Female

DRUGS (6)
  1. SUMIAL [Concomitant]
     Indication: HEPATIC CIRRHOSIS
     Dosage: UNK
     Route: 048
     Dates: end: 20080904
  2. FUROSEMIDE [Interacting]
     Indication: HEPATIC CIRRHOSIS
     Dosage: UNK
     Route: 048
     Dates: start: 20020101, end: 20080909
  3. DICLOFENAC SODIUM [Interacting]
     Indication: PAIN
     Dosage: UNK
     Route: 048
     Dates: start: 20080825, end: 20080901
  4. MICARDIS [Interacting]
     Dosage: UNK
     Route: 048
     Dates: start: 20060101, end: 20080905
  5. ALDACTONE [Suspect]
     Indication: HEPATIC CIRRHOSIS
     Dosage: UNK
     Route: 048
     Dates: start: 20020101, end: 20080901
  6. OMEPRAZOL [Concomitant]
     Dosage: UNK
     Route: 048
     Dates: end: 20080909

REACTIONS (3)
  - HEPATIC ENCEPHALOPATHY [None]
  - RENAL FAILURE ACUTE [None]
  - DRUG INTERACTION [None]
